FAERS Safety Report 9286866 (Version 1)
Quarter: 2013Q2

REPORT INFORMATION
  Report Type: Spontaneous
  Country: US (occurrence: US)
  Receive Date: 20130513
  Receipt Date: 20130513
  Transmission Date: 20140414
  Serious: Yes (Disabling, Other)
  Sender: FDA-Public Use
  Company Number: US-PFIZER INC-2013145011

PATIENT
  Sex: Male

DRUGS (5)
  1. CELEBREX [Suspect]
     Dosage: 200 MG, 2X/DAY
     Route: 048
  2. CELEBREX [Suspect]
     Dosage: 100 MG, 2X/DAY
     Route: 048
  3. CELEBREX [Suspect]
     Dosage: 200 MG, 2X/DAY
     Route: 048
  4. VALIUM [Concomitant]
     Dosage: UNK
  5. CORTISONE [Concomitant]
     Dosage: UNK

REACTIONS (5)
  - Deafness [Unknown]
  - Nephrolithiasis [Unknown]
  - Injury [Unknown]
  - Drug ineffective [Unknown]
  - Discomfort [Unknown]
